FAERS Safety Report 9912983 (Version 1)
Quarter: 2014Q1

REPORT INFORMATION
  Report Type: Spontaneous
  Country: US (occurrence: None)
  Receive Date: 20140218
  Receipt Date: 20140218
  Transmission Date: 20141002
  Serious: No
  Sender: FDA-Public Use
  Company Number: None

PATIENT
  Sex: Male

DRUGS (1)
  1. DEPOTESTOSTERONE [Suspect]

REACTIONS (2)
  - Thrombosis [None]
  - Pulmonary thrombosis [None]
